FAERS Safety Report 24367651 (Version 1)
Quarter: 2024Q3

REPORT INFORMATION
  Report Type: Spontaneous
  Country: US (occurrence: US)
  Receive Date: 20240926
  Receipt Date: 20240926
  Transmission Date: 20241017
  Serious: No
  Sender: SANDOZ
  Company Number: US-SANDOZ-SDZ2024US082664

PATIENT
  Sex: Female

DRUGS (10)
  1. TERIFLUNOMIDE [Suspect]
     Active Substance: TERIFLUNOMIDE
     Indication: Product used for unknown indication
     Dosage: UNK
     Route: 065
     Dates: start: 202402
  2. BACLOFEN [Concomitant]
     Active Substance: BACLOFEN
     Indication: Product used for unknown indication
     Dosage: 10 MG, TAKE 1 TABLET(S) ORAL HS, 90 DAYS, 1 REFILL, FOR A TOTAL OF 90
     Route: 048
     Dates: start: 20240718
  3. GABAPENTIN [Concomitant]
     Active Substance: GABAPENTIN
     Indication: Product used for unknown indication
     Dosage: 300 MG, TID, 1 TABLET(S) PO 1 TABLET(S) ORAL THREE TIMES A DAY, 30 DAYS, 1 REFILL, FOR A TOTAL OF 90
     Route: 048
     Dates: start: 20240909
  4. KESIMPTA [Concomitant]
     Active Substance: OFATUMUMAB
     Indication: Product used for unknown indication
     Dosage: 20 G, QMO, PEN 20 MG/0.4 ML SUBCUTANEOUS PEN INJECTOR
     Route: 058
     Dates: start: 20240718
  5. PANTOPRAZOLE [Concomitant]
     Active Substance: PANTOPRAZOLE
     Indication: Product used for unknown indication
     Dosage: 40 MG, QD, DELAYED RELEASE
     Route: 048
  6. PROVIGIL [Concomitant]
     Active Substance: MODAFINIL
     Indication: Fatigue
     Dosage: 100 MG, QD, TAKE 1 TABLET(S) ORAL QPM, 90 DAYS, 1 REFILL, FOR A TOTAL OF 90,
     Route: 048
     Dates: start: 20240802
  7. PROVIGIL [Concomitant]
     Active Substance: MODAFINIL
     Indication: Malaise
     Dosage: 200 MG, QD, TAKE 1 TABLET(S) ORAL QAM, 90 DAYS, 1 REFILL, FOR A TOTAL OF 90,
     Route: 048
     Dates: start: 20240718
  8. TRAZODONE [Concomitant]
     Active Substance: TRAZODONE HYDROCHLORIDE
     Indication: Insomnia
     Dosage: 100 MG, TAKE 1 TABLET(S) ORAL HS, 90 DAYS
     Route: 048
     Dates: start: 20240718
  9. TYLENOL ARTHRITIS PAIN [Concomitant]
     Active Substance: ACETAMINOPHEN
     Indication: Product used for unknown indication
     Dosage: 650 MG, BID, TABLET,EXTENDED RELEASE
     Route: 048
  10. VITAMIN D [Concomitant]
     Active Substance: VITAMIN D NOS
     Indication: Vitamin D deficiency
     Dosage: 1 DF, QD, 10,000 UNITS
     Route: 065
     Dates: start: 20231229

REACTIONS (5)
  - Fatigue [Unknown]
  - Band sensation [Unknown]
  - Drug intolerance [Unknown]
  - Herpes zoster [Unknown]
  - Alopecia [Unknown]
